FAERS Safety Report 6308251-6 (Version None)
Quarter: 2009Q3

REPORT INFORMATION
  Report Type: 
  Country: None (occurrence: None)
  Receive Date: 20090813
  Receipt Date: 20090810
  Transmission Date: 20100115
  Serious: Yes (Other)
  Sender: FDA-Public Use
  Company Number: US-ABBOTT-09P-163-0590244-00

PATIENT
  Sex: Male

DRUGS (2)
  1. HUMIRA [Suspect]
     Indication: RHEUMATOID ARTHRITIS
     Dosage: UNKNOWN
     Dates: end: 20090601
  2. HUMIRA [Suspect]
     Dosage: UNKNOWN
     Dates: end: 20090808

REACTIONS (5)
  - ABDOMINAL DISTENSION [None]
  - DYSPNOEA [None]
  - HERNIA [None]
  - SWELLING [None]
  - WEIGHT INCREASED [None]
